FAERS Safety Report 23857300 (Version 1)
Quarter: 2024Q2

REPORT INFORMATION
  Report Type: Other
  Country: CA (occurrence: CA)
  Receive Date: 20240515
  Receipt Date: 20240515
  Transmission Date: 20240716
  Serious: Yes (Other)
  Sender: FDA-Public Use
  Company Number: CA-APOTEX-2024AP005688

PATIENT
  Age: 42 Year

DRUGS (5)
  1. PREDNISONE [Suspect]
     Active Substance: PREDNISONE
     Indication: Pityriasis rubra pilaris
     Dosage: 40 MILLIGRAM, QD
     Route: 048
  2. PREDNISONE [Suspect]
     Active Substance: PREDNISONE
     Dosage: 35 MILLIGRAM, QD
     Route: 048
  3. CYCLOSPORINE [Suspect]
     Active Substance: CYCLOSPORINE
     Indication: Pityriasis rubra pilaris
     Dosage: 200 MILLIGRAM, BID
     Route: 065
  4. CYCLOSPORINE [Suspect]
     Active Substance: CYCLOSPORINE
     Dosage: 150 MILLIGRAM, BID
     Route: 065
  5. BETAMETHASONE [Suspect]
     Active Substance: BETAMETHASONE\BETAMETHASONE DIPROPIONATE
     Indication: Pityriasis rubra pilaris
     Dosage: UNK
     Route: 061

REACTIONS (3)
  - Pityriasis rubra pilaris [Recovering/Resolving]
  - Dermatitis exfoliative generalised [Recovering/Resolving]
  - Therapeutic product ineffective [Recovering/Resolving]
